FAERS Safety Report 4661095-3 (Version None)
Quarter: 2005Q2

REPORT INFORMATION
  Report Type: 
  Country: None (occurrence: None)
  Receive Date: 20050511
  Receipt Date: 20050428
  Transmission Date: 20051028
  Serious: Yes (Other)
  Sender: FDA-Public Use
  Company Number: 2005055026

PATIENT
  Age: 61 Year
  Sex: Female

DRUGS (3)
  1. BEXTRA [Suspect]
     Indication: LOCALISED INFECTION
     Dosage: 40MG (40 MG, 1 IN 1 D), ORAL
     Route: 048
     Dates: start: 20040901, end: 20050401
  2. DICLOFENAC SODIUM [Concomitant]
  3. ANACIN                    (ACETYLSALICYLIC ACID, CAFFEINE) [Concomitant]

REACTIONS (6)
  - ABNORMAL BEHAVIOUR [None]
  - AGITATION [None]
  - DIZZINESS [None]
  - HALLUCINATION [None]
  - HEADACHE [None]
  - SYNCOPE [None]
